FAERS Safety Report 20467453 (Version 5)
Quarter: 2025Q4

REPORT INFORMATION
  Report Type: Report from Study
  Country: US (occurrence: US)
  Receive Date: 20220214
  Receipt Date: 20251125
  Transmission Date: 20260117
  Serious: Yes (Other)
  Sender: DECIPHERA PHARMACEUTICALS
  Company Number: US-DECIPHERA PHARMACEUTICALS LLC-2022US000128

PATIENT
  Age: 62 Year
  Sex: Male

DRUGS (3)
  1. QINLOCK [Suspect]
     Active Substance: RIPRETINIB
     Indication: Gastrointestinal stromal tumour
     Dosage: 100 MILLIGRAM, QD
     Dates: start: 20220114, end: 2022
  2. QINLOCK [Suspect]
     Active Substance: RIPRETINIB
     Dosage: 50 MILLIGRAM, QD
     Dates: start: 20220415
  3. QINLOCK [Suspect]
     Active Substance: RIPRETINIB
     Dosage: 50 MILLIGRAM, QD
     Dates: end: 20220422

REACTIONS (21)
  - Pneumonia [Unknown]
  - Neuropathy peripheral [Unknown]
  - Joint swelling [Unknown]
  - Palpitations [Unknown]
  - Dry mouth [Unknown]
  - Nasal crusting [Unknown]
  - Epistaxis [Unknown]
  - Musculoskeletal stiffness [Unknown]
  - Adverse event [Unknown]
  - Neoplasm progression [Unknown]
  - Rhinitis [Unknown]
  - Dysphagia [Unknown]
  - Pain in extremity [Unknown]
  - Weight decreased [Unknown]
  - Myalgia [Unknown]
  - Alopecia [Unknown]
  - Dyspnoea [Unknown]
  - Drug ineffective [Unknown]
  - Underdose [Unknown]
  - Product physical issue [Unknown]
  - Product shape issue [Unknown]

NARRATIVE: CASE EVENT DATE: 20220101
